FAERS Safety Report 23778485 (Version 1)
Quarter: 2024Q2

REPORT INFORMATION
  Report Type: Spontaneous
  Country: FR (occurrence: FR)
  Receive Date: 20240424
  Receipt Date: 20240424
  Transmission Date: 20240716
  Serious: Yes (Other)
  Sender: FDA-Public Use
  Company Number: FR-ALNYLAM PHARMACEUTICALS, INC.-ALN-2024-002207

PATIENT

DRUGS (2)
  1. AMVUTTRA [Suspect]
     Active Substance: VUTRISIRAN
     Indication: Product used for unknown indication
     Dosage: UNK
     Route: 058
     Dates: start: 2023, end: 2023
  2. AMVUTTRA [Suspect]
     Active Substance: VUTRISIRAN
     Dosage: UNK
     Route: 058
     Dates: start: 20240412, end: 20240412

REACTIONS (7)
  - Suicidal ideation [Unknown]
  - Negative thoughts [Unknown]
  - Apathy [Unknown]
  - Asthenia [Unknown]
  - Fatigue [Unknown]
  - Pain [Unknown]
  - Sleep disorder [Unknown]

NARRATIVE: CASE EVENT DATE: 20240412
